FAERS Safety Report 23137812 (Version 1)
Quarter: 2023Q4

REPORT INFORMATION
  Report Type: Spontaneous
  Country: US (occurrence: None)
  Receive Date: 20231031
  Receipt Date: 20231031
  Transmission Date: 20240110
  Serious: Yes (Hospitalization, Other)
  Sender: FDA-Public Use
  Company Number: None

PATIENT
  Age: 35 Year
  Sex: Female
  Weight: 54.43 kg

DRUGS (2)
  1. SKYLA [Suspect]
     Active Substance: LEVONORGESTREL
     Indication: Contraception
     Dates: start: 20210815
  2. One a day for women [Concomitant]

REACTIONS (1)
  - Device dislocation [None]

NARRATIVE: CASE EVENT DATE: 20230420
